FAERS Safety Report 20506766 (Version 1)
Quarter: 2022Q1

REPORT INFORMATION
  Report Type: Spontaneous
  Country: US (occurrence: None)
  Receive Date: 20220223
  Receipt Date: 20220223
  Transmission Date: 20220424
  Serious: Yes (Hospitalization)
  Sender: FDA-Public Use
  Company Number: None

PATIENT
  Sex: Male

DRUGS (1)
  1. ZARXIO [Suspect]
     Active Substance: FILGRASTIM-SNDZ
     Indication: Lung transplant
     Dosage: OTHER STRENGTH : 300/0.5 UG/ML;?FREQUENCY : DAILY;?
     Route: 058
     Dates: start: 20220203

REACTIONS (1)
  - Leukopenia [None]
